FAERS Safety Report 16780843 (Version 1)
Quarter: 2019Q3

REPORT INFORMATION
  Report Type: Spontaneous
  Country: US (occurrence: US)
  Receive Date: 20190717
  Receipt Date: 20190717
  Transmission Date: 20191005
  Serious: No
  Sender: FDA-Public Use
  Company Number: None

PATIENT
  Age: 74 Year
  Sex: Female

DRUGS (3)
  1. SPIRONOLACTONE 25MG [Concomitant]
     Active Substance: SPIRONOLACTONE
  2. METOPROLOL 25MG SUCC ER TAB [Concomitant]
  3. REPATHA [Suspect]
     Active Substance: EVOLOCUMAB
     Indication: HYPERLIPIDAEMIA
     Dosage: ?          OTHER FREQUENCY:UNKNOWN;?
     Route: 058
     Dates: start: 201901

REACTIONS (4)
  - Abdominal pain upper [None]
  - Alopecia [None]
  - Back pain [None]
  - Fatigue [None]

NARRATIVE: CASE EVENT DATE: 20190717
